FAERS Safety Report 18848357 (Version 2)
Quarter: 2021Q1

REPORT INFORMATION
  Report Type: Spontaneous
  Country: BR (occurrence: BR)
  Receive Date: 20210204
  Receipt Date: 20210210
  Transmission Date: 20210419
  Serious: Yes (Hospitalization, Other)
  Sender: FDA-Public Use
  Company Number: BR-ASTRAZENECA-2021A020526

PATIENT
  Age: 20838 Day
  Sex: Male
  Weight: 95 kg

DRUGS (2)
  1. QTERN [Suspect]
     Active Substance: DAPAGLIFLOZIN\SAXAGLIPTIN HYDROCHLORIDE
     Indication: DIABETES MELLITUS
     Dosage: DAILY DOSAGE: 1 TABLET
     Route: 048
  2. QTERN [Suspect]
     Active Substance: DAPAGLIFLOZIN\SAXAGLIPTIN HYDROCHLORIDE
     Indication: DIABETES MELLITUS
     Dosage: DAILY DOSAGE: 1 TABLET
     Route: 048

REACTIONS (7)
  - Pancreatitis [Unknown]
  - Pancreatitis acute [Unknown]
  - Cold sweat [Unknown]
  - Hepatic steatosis [Unknown]
  - Pyrexia [Unknown]
  - Chills [Unknown]
  - Functional gastrointestinal disorder [Unknown]

NARRATIVE: CASE EVENT DATE: 20201216
